FAERS Safety Report 4693997-6 (Version None)
Quarter: 2005Q2

REPORT INFORMATION
  Report Type: 
  Country: None (occurrence: None)
  Receive Date: 20050616
  Receipt Date: 20050606
  Transmission Date: 20051028
  Serious: Yes (Other)
  Sender: FDA-Public Use
  Company Number: 2005S1000107

PATIENT
  Age: 73 Year
  Sex: Female
  Weight: 104.5 kg

DRUGS (19)
  1. CUBICIN [Suspect]
     Indication: ENTEROCOCCAL INFECTION
     Dosage: 7.7 MG/KG; QW; IV
     Route: 042
     Dates: start: 20050501, end: 20050501
  2. CUBICIN [Suspect]
     Indication: WOUND INFECTION
     Dosage: 7.7 MG/KG; QW; IV
     Route: 042
     Dates: start: 20050501, end: 20050501
  3. CEFEPIME [Suspect]
     Indication: ENTEROCOCCAL INFECTION
     Dosage: 2 GM; Q12H; IV
     Route: 042
     Dates: end: 20050501
  4. CEFEPIME [Suspect]
     Indication: WOUND INFECTION
     Dosage: 2 GM; Q12H; IV
     Route: 042
     Dates: end: 20050501
  5. RAMIPRIL [Concomitant]
  6. CELECOXIB [Concomitant]
  7. DESLORATADINE [Concomitant]
  8. DILTIAZEM [Concomitant]
  9. FUROSEMIDE [Concomitant]
  10. ISOSORBIDE [Concomitant]
  11. MORPHINE [Concomitant]
  12. M.V.I. [Concomitant]
  13. POTASSIUM CHLORIDE [Concomitant]
  14. PANTOPRAZOLE [Concomitant]
  15. SENNA [Concomitant]
  16. METOPROLOL [Concomitant]
  17. FENTANYL [Concomitant]
  18. CEFEPIME [Concomitant]
  19. LEVOFLOXACIN [Concomitant]

REACTIONS (3)
  - HAEMODIALYSIS [None]
  - MUSCLE TWITCHING [None]
  - RENAL FAILURE ACUTE [None]
